FAERS Safety Report 21672168 (Version 1)
Quarter: 2022Q4

REPORT INFORMATION
  Report Type: Spontaneous
  Country: DE (occurrence: DE)
  Receive Date: 20221202
  Receipt Date: 20221202
  Transmission Date: 20230113
  Serious: Yes (Hospitalization)
  Sender: FDA-Public Use
  Company Number: None

PATIENT
  Age: 65 Year
  Sex: Male
  Weight: 67 kg

DRUGS (2)
  1. CAPECITABINE [Suspect]
     Active Substance: CAPECITABINE
     Indication: Product used for unknown indication
  2. OXALIPLATIN [Suspect]
     Active Substance: OXALIPLATIN
     Indication: Product used for unknown indication

REACTIONS (9)
  - Sensation of foreign body [Unknown]
  - Thrombocytopenia [Unknown]
  - Product prescribing error [Unknown]
  - Diarrhoea [Unknown]
  - Syncope [Unknown]
  - Leukopenia [Unknown]
  - Decreased appetite [Unknown]
  - Loss of consciousness [Unknown]
  - Sepsis [Unknown]

NARRATIVE: CASE EVENT DATE: 20210204
